FAERS Safety Report 8763788 (Version 1)
Quarter: 2012Q4

REPORT INFORMATION
  Report Type: 
  Country: BR (occurrence: BR)
  Receive Date: 20120831
  Receipt Date: 20120831
  Transmission Date: 20130627
  Serious: Yes (Hospitalization)
  Sender: FDA-Public Use
  Company Number: BR-PFIZER INC-2012210084

PATIENT
  Age: 66 Year
  Sex: Male

DRUGS (1)
  1. CELEBRA [Suspect]
     Indication: PAIN
     Dosage: UNK
     Route: 048
     Dates: start: 201206

REACTIONS (1)
  - Patella fracture [Unknown]
